FAERS Safety Report 7672501-4 (Version None)
Quarter: 2011Q3

REPORT INFORMATION
  Report Type: 
  Country: None (occurrence: None)
  Receive Date: 20110809
  Receipt Date: 20110805
  Transmission Date: 20111222
  Serious: Yes (Other)
  Sender: FDA-Public Use
  Company Number: US-PFIZER INC-2011180082

PATIENT
  Sex: Male

DRUGS (1)
  1. ADVIL LIQUI-GELS [Suspect]
     Dosage: UNK

REACTIONS (4)
  - SCIATICA [None]
  - ABDOMINAL DISCOMFORT [None]
  - ILL-DEFINED DISORDER [None]
  - ARTHROPATHY [None]
